FAERS Safety Report 7234479-7 (Version None)
Quarter: 2011Q1

REPORT INFORMATION
  Report Type: 
  Country: None (occurrence: None)
  Receive Date: 20110119
  Receipt Date: 20110113
  Transmission Date: 20110831
  Serious: Yes (Life-Threatening, Other)
  Sender: FDA-Public Use
  Company Number: ZA-ELI_LILLY_AND_COMPANY-ZA201101003844

PATIENT
  Sex: Male

DRUGS (1)
  1. HUMULIN 70/30 [Suspect]
     Dosage: 38 U, UNK
     Dates: start: 20101001

REACTIONS (4)
  - APPARENT DEATH [None]
  - SYNCOPE [None]
  - ASTHENIA [None]
  - HYPOGLYCAEMIA [None]
